FAERS Safety Report 20568293 (Version 1)
Quarter: 2022Q1

REPORT INFORMATION
  Report Type: Spontaneous
  Country: FR (occurrence: FR)
  Receive Date: 20220308
  Receipt Date: 20220308
  Transmission Date: 20220423
  Serious: Yes (Other)
  Sender: FDA-Public Use
  Company Number: FR-TEVA-2022-FR-2010067

PATIENT
  Age: 37 Year
  Sex: Female

DRUGS (4)
  1. VALIUM [Suspect]
     Active Substance: DIAZEPAM
     Indication: Mental disorder
     Route: 065
     Dates: start: 2016
  2. DIAZEPAM [Suspect]
     Active Substance: DIAZEPAM
     Indication: Mental disorder
     Dosage: DAILY
     Route: 065
     Dates: start: 2016
  3. DIAZEPAM [Suspect]
     Active Substance: DIAZEPAM
     Dosage: ONE DOSAGE FORM AND A HALF AT MIDDAY AND 2 DOSAGE FORMS IN THE EVENING
     Route: 065
  4. HALDOL [Concomitant]
     Active Substance: HALOPERIDOL
     Indication: Mental disorder

REACTIONS (12)
  - Anxiety [Unknown]
  - Dysstasia [Unknown]
  - Decreased interest [Unknown]
  - Nervousness [Unknown]
  - Dependence [Unknown]
  - Product use issue [Unknown]
  - Decreased appetite [Unknown]
  - Mood swings [Unknown]
  - Hyperhidrosis [Unknown]
  - Wrong technique in product usage process [Unknown]
  - Rebound effect [Unknown]
  - Compulsive lip biting [Unknown]
